FAERS Safety Report 8003362-1 (Version None)
Quarter: 2011Q4

REPORT INFORMATION
  Report Type: 
  Country: None (occurrence: None)
  Receive Date: 20111222
  Receipt Date: 20111202
  Transmission Date: 20120403
  Serious: Yes (Other)
  Sender: FDA-Public Use
  Company Number: IT-PFIZER INC-K201100536

PATIENT
  Age: 6 Year
  Sex: Female

DRUGS (1)
  1. RAMIPRIL [Suspect]
     Dosage: 2.5 MG, 1X/DAY
     Route: 048
     Dates: start: 20090925, end: 20110120

REACTIONS (2)
  - PARAESTHESIA [None]
  - PAIN IN EXTREMITY [None]
